FAERS Safety Report 16048660 (Version 2)
Quarter: 2019Q1

REPORT INFORMATION
  Report Type: Report from Study
  Country: US (occurrence: US)
  Receive Date: 20190307
  Receipt Date: 20190314
  Transmission Date: 20190418
  Serious: No
  Sender: FDA-Public Use
  Company Number: US-SA-2019SA061723

PATIENT
  Age: 81 Year
  Sex: Female

DRUGS (2)
  1. ALIROCUMAB [Suspect]
     Active Substance: ALIROCUMAB
     Indication: BLOOD CHOLESTEROL INCREASED
     Dosage: 75 MG, QOW
     Route: 058
     Dates: start: 20190130
  2. ALIROCUMAB [Suspect]
     Active Substance: ALIROCUMAB
     Indication: ARTERIOSCLEROSIS

REACTIONS (9)
  - Pain [Unknown]
  - Fatigue [Unknown]
  - Injury associated with device [Unknown]
  - Fibromyalgia [Unknown]
  - Nausea [Unknown]
  - Device use issue [Unknown]
  - Product administered at inappropriate site [Unknown]
  - Malaise [Unknown]
  - Gastrointestinal sounds abnormal [Unknown]
